FAERS Safety Report 23218255 (Version 1)
Quarter: 2023Q4

REPORT INFORMATION
  Report Type: Spontaneous
  Country: US (occurrence: US)
  Receive Date: 20231122
  Receipt Date: 20231122
  Transmission Date: 20240110
  Serious: No
  Sender: FDA-Public Use
  Company Number: US-PERRIGO-22US015884

PATIENT
  Age: 43 Year
  Sex: Male
  Weight: 95.238 kg

DRUGS (2)
  1. NICOTINE POLACRILEX [Suspect]
     Active Substance: NICOTINE
     Indication: Smoking cessation therapy
     Dosage: UNKNOWN, PRN
     Route: 002
     Dates: end: 202211
  2. NICOTINE POLACRILEX [Suspect]
     Active Substance: NICOTINE
     Dosage: 2 MG, PRN
     Route: 002
     Dates: start: 202211, end: 202211

REACTIONS (4)
  - Insomnia [Recovered/Resolved]
  - Logorrhoea [Recovered/Resolved]
  - Feeling abnormal [Recovered/Resolved]
  - Heart rate increased [Recovered/Resolved]

NARRATIVE: CASE EVENT DATE: 20221101
